FAERS Safety Report 9520523 (Version 2)
Quarter: 2013Q4

REPORT INFORMATION
  Report Type: Spontaneous
  Country: FR (occurrence: FR)
  Receive Date: 20130913
  Receipt Date: 20131008
  Transmission Date: 20140711
  Serious: Yes (Life-Threatening)
  Sender: FDA-Public Use
  Company Number: FR-ROCHE-1274755

PATIENT
  Age: 15 Year
  Sex: Female

DRUGS (1)
  1. APRANAX [Suspect]
     Indication: PRODUCT USED FOR UNKNOWN INDICATION
     Dosage: 500 MG IN THE MORNING, 750 MG IN THE EVENING FOR 1 MONTH, THEN 500 MG TWICE DAILY
     Route: 048
     Dates: start: 20130411, end: 20130816

REACTIONS (1)
  - Renal failure acute [Recovered/Resolved]
